FAERS Safety Report 19068094 (Version 1)
Quarter: 2021Q1

REPORT INFORMATION
  Report Type: Spontaneous
  Country: ES (occurrence: ES)
  Receive Date: 20210329
  Receipt Date: 20210329
  Transmission Date: 20210420
  Serious: Yes (Hospitalization, Disabling)
  Sender: FDA-Public Use
  Company Number: ES-ABBVIE-21K-144-3836689-00

PATIENT
  Age: 46 Year

DRUGS (2)
  1. ENOXAPARINA [Concomitant]
     Active Substance: ENOXAPARIN
     Indication: ATRIAL FIBRILLATION
     Dosage: 80 MG CADA 12 HORAS
     Route: 058
     Dates: start: 20210211, end: 20210215
  2. IMBRUVICA [Suspect]
     Active Substance: IBRUTINIB
     Indication: CHRONIC LYMPHOCYTIC LEUKAEMIA
     Route: 048
     Dates: start: 20210211, end: 20210215

REACTIONS (6)
  - Haematoma muscle [Recovered/Resolved with Sequelae]
  - Compartment syndrome [Recovered/Resolved with Sequelae]
  - Thrombocytopenia [Recovered/Resolved]
  - Incorrect dose administered [Unknown]
  - Off label use [Unknown]
  - Tumour lysis syndrome [Recovered/Resolved]

NARRATIVE: CASE EVENT DATE: 20210211
